FAERS Safety Report 17410024 (Version 1)
Quarter: 2020Q1

REPORT INFORMATION
  Report Type: Spontaneous
  Country: FR (occurrence: FR)
  Receive Date: 20200212
  Receipt Date: 20200212
  Transmission Date: 20200409
  Serious: Yes (Death, Other)
  Sender: FDA-Public Use
  Company Number: FR-PFIZER INC-2020059626

PATIENT
  Age: 72 Year
  Sex: Male
  Weight: 70 kg

DRUGS (2)
  1. ZYLORIC [Suspect]
     Active Substance: ALLOPURINOL
     Dosage: UNK
     Route: 048
     Dates: start: 20190930, end: 20191107
  2. AMLOR [Suspect]
     Active Substance: AMLODIPINE BESYLATE
     Dosage: UNK
     Route: 048
     Dates: start: 20190930, end: 20191107

REACTIONS (7)
  - Hyperthermia [Fatal]
  - Acute kidney injury [Fatal]
  - Cell death [Fatal]
  - Rash [Fatal]
  - Drug reaction with eosinophilia and systemic symptoms [Fatal]
  - Cholestasis [Fatal]
  - Eosinophilia [Fatal]

NARRATIVE: CASE EVENT DATE: 20191027
